FAERS Safety Report 7515314-6 (Version None)
Quarter: 2011Q2

REPORT INFORMATION
  Report Type: 
  Country: None (occurrence: None)
  Receive Date: 20110601
  Receipt Date: 20110523
  Transmission Date: 20111010
  Serious: Yes (Other)
  Sender: FDA-Public Use
  Company Number: BR-MEDIMMUNE-MEDI-0013239

PATIENT
  Sex: Male
  Weight: 8.45 kg

DRUGS (4)
  1. SYNAGIS [Suspect]
     Route: 030
     Dates: start: 20110420, end: 20110523
  2. SYNAGIS [Suspect]
     Indication: BRONCHOPULMONARY DYSPLASIA
  3. FERROUS SULFATE TAB [Concomitant]
     Route: 048
     Dates: start: 20091212
  4. PROTOVIT [Concomitant]
     Route: 048
     Dates: start: 20091212

REACTIONS (14)
  - RHINITIS [None]
  - VOMITING [None]
  - PYREXIA [None]
  - PRURITUS [None]
  - BRONCHIAL SECRETION RETENTION [None]
  - CONJUNCTIVITIS BACTERIAL [None]
  - TONSILLITIS [None]
  - RASH MACULAR [None]
  - BRONCHIOLITIS [None]
  - VIRAL INFECTION [None]
  - APNOEA [None]
  - COUGH [None]
  - WHEEZING [None]
  - INSOMNIA [None]
